FAERS Safety Report 4624994-4 (Version None)
Quarter: 2005Q2

REPORT INFORMATION
  Report Type: 
  Country: None (occurrence: None)
  Receive Date: 20050401
  Receipt Date: 20050321
  Transmission Date: 20051028
  Serious: Yes (Other)
  Sender: FDA-Public Use
  Company Number: IE-JNJFOC-20040909781

PATIENT
  Age: 21 Year
  Sex: Male

DRUGS (5)
  1. RISPERDAL CONSTA [Suspect]
     Route: 030
  2. RISPERDAL CONSTA [Suspect]
     Route: 030
  3. MOTILIUM [Concomitant]
  4. ZOTON [Concomitant]
  5. ELTROXIN [Concomitant]
     Indication: HYPOTHYROIDISM

REACTIONS (2)
  - LIVER FUNCTION TEST ABNORMAL [None]
  - THYROID DISORDER [None]
